FAERS Safety Report 18419021 (Version 1)
Quarter: 2020Q4

REPORT INFORMATION
  Report Type: Spontaneous
  Country: US (occurrence: US)
  Receive Date: 20201023
  Receipt Date: 20201023
  Transmission Date: 20210114
  Serious: No
  Sender: FDA-Public Use
  Company Number: None

PATIENT
  Age: 67 Year
  Sex: Female

DRUGS (1)
  1. GLATIRAMTER ACETATE (12X1ML) [Suspect]
     Active Substance: GLATIRAMER ACETATE
     Indication: MULTIPLE SCLEROSIS
     Route: 058
     Dates: start: 20200921, end: 20201010

REACTIONS (4)
  - Injection site pain [None]
  - Therapy cessation [None]
  - Injection site erythema [None]
  - Injection site pruritus [None]

NARRATIVE: CASE EVENT DATE: 20200921
